FAERS Safety Report 6581811-3 (Version None)
Quarter: 2010Q1

REPORT INFORMATION
  Report Type: 
  Country: None (occurrence: None)
  Receive Date: 20100215
  Receipt Date: 20100211
  Transmission Date: 20100710
  Serious: Yes (Death, Hospitalization)
  Sender: FDA-Public Use
  Company Number: PHHY2009DE55852

PATIENT
  Sex: Female
  Weight: 68 kg

DRUGS (9)
  1. EXJADE [Suspect]
     Indication: HAEMOSIDEROSIS
     Dosage: 625 MG/DAY
     Route: 048
     Dates: start: 20090813, end: 20090825
  2. EXJADE [Suspect]
     Dosage: 1125 MG DAILY
     Route: 048
     Dates: start: 20090826
  3. AGENTS ACTING ON THE RENIN-ANGIOTENSIN SYSTEM [Concomitant]
     Dosage: UNK
  4. AT-1 RECEPTOR ANATAGONIST [Concomitant]
  5. BISOPROLOL [Concomitant]
     Indication: HYPERTENSION
  6. CODIOVAN [Concomitant]
     Indication: HYPERTENSION
  7. MAGNESIUM [Concomitant]
  8. ACLASTA [Concomitant]
     Indication: OSTEOPOROSIS
     Dosage: 1 YEARLY
  9. HEPARIN [Concomitant]
     Indication: THROMBOSIS PROPHYLAXIS

REACTIONS (6)
  - ASCITES [None]
  - CIRCULATORY COLLAPSE [None]
  - DYSPNOEA [None]
  - GENERAL PHYSICAL HEALTH DETERIORATION [None]
  - PLEURAL EFFUSION [None]
  - PULMONARY EMBOLISM [None]
